FAERS Safety Report 7063492-8 (Version None)
Quarter: 2010Q4

REPORT INFORMATION
  Report Type: 
  Country: None (occurrence: None)
  Receive Date: 20101026
  Receipt Date: 20100512
  Transmission Date: 20110411
  Serious: Yes (Other)
  Sender: FDA-Public Use
  Company Number: US-ABBOTT-10P-163-0636430-00

PATIENT
  Sex: Female
  Weight: 59.02 kg

DRUGS (7)
  1. LUPRON DEPOT [Suspect]
     Indication: MENORRHAGIA
     Route: 030
     Dates: start: 20100217, end: 20100405
  2. LUPRON DEPOT [Suspect]
     Indication: UTERINE LEIOMYOMA
  3. HYDROCHLOROTHIAZIDE [Concomitant]
     Indication: HYPERTENSION
  4. LISINOPRIL [Concomitant]
     Indication: HYPERTENSION
  5. FISH OIL [Concomitant]
     Indication: PRODUCT USED FOR UNKNOWN INDICATION
  6. VITAMINS WITH MG [Concomitant]
     Indication: PRODUCT USED FOR UNKNOWN INDICATION
  7. PAPAYA ENZYMES [Concomitant]
     Indication: PRODUCT USED FOR UNKNOWN INDICATION

REACTIONS (6)
  - ANXIETY [None]
  - HEART RATE INCREASED [None]
  - NAUSEA [None]
  - PALPITATIONS [None]
  - PARAESTHESIA [None]
  - RASH [None]
